FAERS Safety Report 12392801 (Version 3)
Quarter: 2016Q2

REPORT INFORMATION
  Report Type: Spontaneous
  Country: US (occurrence: US)
  Receive Date: 20160523
  Receipt Date: 20160617
  Transmission Date: 20160815
  Serious: Yes (Other)
  Sender: FDA-Public Use
  Company Number: US-009507513-1605USA009457

PATIENT
  Age: 73 Year
  Sex: Female
  Weight: 61.22 kg

DRUGS (7)
  1. DEXAMETHASONE. [Suspect]
     Active Substance: DEXAMETHASONE
     Dosage: 4 MG, BID
     Route: 048
     Dates: start: 20160222, end: 2016
  2. DEXAMETHASONE SODIUM PHOSPHATE. [Suspect]
     Active Substance: DEXAMETHASONE SODIUM PHOSPHATE
     Dosage: LIQUID FORMULATION, UNK
     Dates: start: 20160222, end: 2016
  3. ZANTAC [Concomitant]
     Active Substance: RANITIDINE HYDROCHLORIDE
     Dosage: UNK
  4. SUTENT [Suspect]
     Active Substance: SUNITINIB MALATE
     Indication: RENAL CANCER
     Dosage: 50 MG (1 CAPSULE) , CYCLICAL (1 CAPSULE FOR TWO WEEKS AND ONE WEEK OFF)
     Route: 048
     Dates: start: 20160227, end: 20160501
  5. ATIVAN [Concomitant]
     Active Substance: LORAZEPAM
     Dosage: UNK
  6. DEXAMETHASONE. [Suspect]
     Active Substance: DEXAMETHASONE
     Dosage: 30 (UNITS UNSPECIFIED), QD (4 MG 1 PO)
     Route: 048
     Dates: start: 20160330, end: 20160429
  7. ASPIRIN. [Concomitant]
     Active Substance: ASPIRIN
     Dosage: UNK
     Route: 048

REACTIONS (16)
  - Central nervous system lesion [Unknown]
  - Metastases to lung [Unknown]
  - Metastases to central nervous system [Unknown]
  - Constipation [Unknown]
  - Skin discolouration [Unknown]
  - Blood albumin decreased [Unknown]
  - Rash [Unknown]
  - Chromaturia [Recovering/Resolving]
  - Protein total decreased [Unknown]
  - Weight increased [Unknown]
  - Upper respiratory tract infection [Recovering/Resolving]
  - Dyspnoea [Unknown]
  - Soft tissue mass [Unknown]
  - Metastatic renal cell carcinoma [Unknown]
  - Metastases to liver [Unknown]
  - Fatigue [Unknown]

NARRATIVE: CASE EVENT DATE: 2016
